FAERS Safety Report 8387796-1 (Version None)
Quarter: 2012Q2

REPORT INFORMATION
  Report Type: 
  Country: None (occurrence: None)
  Receive Date: 20120525
  Receipt Date: 20120523
  Transmission Date: 20120825
  Serious: Yes (Hospitalization)
  Sender: FDA-Public Use
  Company Number: IT-GLAXOSMITHKLINE-B0803798A

PATIENT

DRUGS (1)
  1. VOTRIENT [Suspect]
     Indication: RENAL CELL CARCINOMA
     Dosage: 800MG PER DAY
     Route: 048
     Dates: start: 20120206

REACTIONS (4)
  - MUCOSAL INFLAMMATION [None]
  - HYPERTRANSAMINASAEMIA [None]
  - DYSPHAGIA [None]
  - NAUSEA [None]
